FAERS Safety Report 8273640-X (Version None)
Quarter: 2012Q2

REPORT INFORMATION
  Report Type: 
  Country: None (occurrence: None)
  Receive Date: 20120411
  Receipt Date: 20120214
  Transmission Date: 20120825
  Serious: No
  Sender: FDA-Public Use
  Company Number: US-TEVA-322690USA

PATIENT
  Sex: Male
  Weight: 69.008 kg

DRUGS (3)
  1. OLMESARTAN MEDOXOMIL [Concomitant]
     Indication: BLOOD PRESSURE
  2. NUVIGIL [Suspect]
     Indication: NARCOLEPSY
     Route: 048
     Dates: start: 20110101
  3. IBUPROFEN [Concomitant]
     Indication: PAIN
     Route: 048

REACTIONS (4)
  - DRUG EFFECT DECREASED [None]
  - DRUG TOLERANCE [None]
  - BLOOD PRESSURE INCREASED [None]
  - HEADACHE [None]
